FAERS Safety Report 17922849 (Version 1)
Quarter: 2020Q2

REPORT INFORMATION
  Report Type: Spontaneous
  Country: CA (occurrence: CA)
  Receive Date: 20200622
  Receipt Date: 20200622
  Transmission Date: 20200714
  Serious: Yes (Hospitalization)
  Sender: FDA-Public Use
  Company Number: CA-TEVA-2020-CA-1791167

PATIENT
  Age: 70 Year
  Sex: Male
  Weight: 73 kg

DRUGS (4)
  1. PREDNISONE. [Concomitant]
     Active Substance: PREDNISONE
  2. MIRTAZAPINE. [Suspect]
     Active Substance: MIRTAZAPINE
     Indication: PRODUCT USED FOR UNKNOWN INDICATION
     Dosage: 45 MILLIGRAM DAILY;
     Route: 065
  3. DEXILANT [Concomitant]
     Active Substance: DEXLANSOPRAZOLE
  4. PREDNISONE. [Concomitant]
     Active Substance: PREDNISONE

REACTIONS (2)
  - Abdominal pain [Unknown]
  - Crohn^s disease [Unknown]
